FAERS Safety Report 17542919 (Version 3)
Quarter: 2020Q2

REPORT INFORMATION
  Report Type: Spontaneous
  Country: US (occurrence: US)
  Receive Date: 20200316
  Receipt Date: 20200528
  Transmission Date: 20200713
  Serious: No
  Sender: FDA-Public Use
  Company Number: US-AMGEN-USASP2020041288

PATIENT
  Age: 58 Year
  Sex: Female
  Weight: 94.8 kg

DRUGS (1)
  1. ENBREL [Suspect]
     Active Substance: ETANERCEPT
     Indication: RHEUMATOID ARTHRITIS
     Dosage: 50 MG, WEEKLY
     Route: 065
     Dates: start: 2015

REACTIONS (5)
  - Injection site erythema [Unknown]
  - Drug ineffective [Unknown]
  - Injection site inflammation [Unknown]
  - Injection site pruritus [Unknown]
  - Injection site reaction [Unknown]

NARRATIVE: CASE EVENT DATE: 2018
